FAERS Safety Report 15276949 (Version 1)
Quarter: 2018Q3

REPORT INFORMATION
  Report Type: Spontaneous
  Country: SE (occurrence: SE)
  Receive Date: 20180814
  Receipt Date: 20180814
  Transmission Date: 20181010
  Serious: Yes (Life-Threatening, Hospitalization, Other)
  Sender: FDA-Public Use
  Company Number: SE-TAKEDA-2018MPI010418

PATIENT
  Age: 72 Year
  Sex: Female

DRUGS (2)
  1. SULFAMETHOXAZOLE W/TRIMETHOPRIM [Suspect]
     Active Substance: SULFAMETHOXAZOLE\TRIMETHOPRIM
     Indication: PRODUCT USED FOR UNKNOWN INDICATION
     Dosage: UNK
     Route: 065
     Dates: start: 20180604, end: 2018
  2. BORTEZOMIB. [Suspect]
     Active Substance: BORTEZOMIB
     Indication: WALDENSTROM^S MACROGLOBULINAEMIA
     Dosage: UNK
     Route: 065
     Dates: start: 20180604, end: 20180616

REACTIONS (3)
  - Product use in unapproved indication [Unknown]
  - Thrombotic thrombocytopenic purpura [Unknown]
  - Off label use [Unknown]

NARRATIVE: CASE EVENT DATE: 20180604
